FAERS Safety Report 7873539-4 (Version None)
Quarter: 2011Q4

REPORT INFORMATION
  Report Type: 
  Country: None (occurrence: None)
  Receive Date: 20111030
  Receipt Date: 20111025
  Transmission Date: 20120403
  Serious: Yes (Other)
  Sender: FDA-Public Use
  Company Number: US-VERTEX PHARMACEUTICALS INC.-AE-2011-001941

PATIENT
  Sex: Male
  Weight: 83.082 kg

DRUGS (6)
  1. RIBAVIRIN [Concomitant]
     Indication: HEPATITIS C
     Route: 048
     Dates: start: 20110305
  2. LEVEMIR [Concomitant]
     Route: 058
  3. HUMALOG [Concomitant]
     Route: 058
  4. INCIVEK [Suspect]
     Indication: HEPATITIS C
     Route: 048
     Dates: start: 20110813, end: 20110914
  5. PEGASYS [Concomitant]
     Indication: HEPATITIS C
     Route: 058
     Dates: start: 20110305
  6. SYNTHROID [Concomitant]
     Route: 048

REACTIONS (4)
  - CONVULSION [None]
  - AGGRESSION [None]
  - CONFUSIONAL STATE [None]
  - PRURITUS GENERALISED [None]
